FAERS Safety Report 12661201 (Version 2)
Quarter: 2016Q3

REPORT INFORMATION
  Report Type: Spontaneous
  Country: US (occurrence: US)
  Receive Date: 20160817
  Receipt Date: 20160901
  Transmission Date: 20161109
  Serious: No
  Sender: FDA-Public Use
  Company Number: US-RELYPSA-RLY2016000667

PATIENT
  Age: 75 Year
  Sex: Male

DRUGS (20)
  1. VELTASSA [Suspect]
     Active Substance: PATIROMER
     Indication: HYPERKALAEMIA
     Dosage: 8.4 G, Q.D.
     Route: 048
     Dates: start: 20160422
  2. KIONEX [Concomitant]
     Active Substance: SODIUM POLYSTYRENE SULFONATE
  3. TYLENOL [Concomitant]
     Active Substance: ACETAMINOPHEN
  4. ISOSORBIDE DINITRATE. [Concomitant]
     Active Substance: ISOSORBIDE DINITRATE
  5. PROCRIT [Concomitant]
     Active Substance: ERYTHROPOIETIN
  6. COLACE [Concomitant]
     Active Substance: DOCUSATE SODIUM
  7. HYDROCODONE BITARTRATE AND ACETAMINOPHEN [Concomitant]
     Active Substance: ACETAMINOPHEN\HYDROCODONE BITARTRATE
  8. HUMALOG MIX [Concomitant]
     Active Substance: INSULIN LISPRO
  9. CELLUVISC                          /00007002/ [Concomitant]
  10. GABAPENTIN. [Concomitant]
     Active Substance: GABAPENTIN
  11. REFRESH LIQUIGEL [Concomitant]
     Active Substance: CARBOXYMETHYLCELLULOSE SODIUM
  12. SIMVASTATIN. [Concomitant]
     Active Substance: SIMVASTATIN
  13. L-THYROXINE                        /00068001/ [Concomitant]
     Active Substance: LEVOTHYROXINE
  14. LOVENOX [Concomitant]
     Active Substance: ENOXAPARIN SODIUM
  15. LUMIGAN [Concomitant]
     Active Substance: BIMATOPROST
  16. OMEPRAZOLE. [Concomitant]
     Active Substance: OMEPRAZOLE
  17. TRADJENTA [Concomitant]
     Active Substance: LINAGLIPTIN
  18. SIMVASTATIN. [Concomitant]
     Active Substance: SIMVASTATIN
  19. COLACE CLEAR [Concomitant]
     Active Substance: DOCUSATE SODIUM
  20. HYDRALAZINE HCL [Concomitant]
     Active Substance: HYDRALAZINE HYDROCHLORIDE

REACTIONS (1)
  - Constipation [Unknown]

NARRATIVE: CASE EVENT DATE: 20160422
